FAERS Safety Report 8805071 (Version 2)
Quarter: 2015Q2

REPORT INFORMATION
  Report Type: Report from Study
  Country: US (occurrence: US)
  Receive Date: 20120924
  Receipt Date: 20150618
  Transmission Date: 20150821
  Serious: Yes (Death, Hospitalization)
  Sender: FDA-Public Use
  Company Number: US-ROCHE-1124970

PATIENT
  Age: 49 Year
  Sex: Female

DRUGS (2)
  1. ABRAXANE [Concomitant]
     Active Substance: PACLITAXEL
  2. AVASTIN [Suspect]
     Active Substance: BEVACIZUMAB
     Indication: BREAST CANCER FEMALE
     Route: 042
     Dates: start: 20051017

REACTIONS (8)
  - Off label use [Unknown]
  - Confusional state [Unknown]
  - Portal hypertension [Unknown]
  - Ataxia [Unknown]
  - Death [Fatal]
  - Nuclear magnetic resonance imaging brain abnormal [Unknown]
  - Ascites [Unknown]
  - Wound [Unknown]

NARRATIVE: CASE EVENT DATE: 20060208
